FAERS Safety Report 10268724 (Version 2)
Quarter: 2014Q3

REPORT INFORMATION
  Report Type: Spontaneous
  Country: US (occurrence: US)
  Receive Date: 20140630
  Receipt Date: 20140711
  Transmission Date: 20150326
  Serious: Yes (Other)
  Sender: FDA-Public Use
  Company Number: US-TEVA-491688USA

PATIENT
  Age: 31 Year
  Sex: Female
  Weight: 51.76 kg

DRUGS (1)
  1. PLAN B ONE-STEP [Suspect]
     Active Substance: LEVONORGESTREL
     Indication: POST COITAL CONTRACEPTION
     Dosage: 1.5 MILLIGRAM DAILY;
     Route: 048
     Dates: start: 20140608, end: 20140608

REACTIONS (7)
  - Ovarian cyst [Unknown]
  - Breast tenderness [Unknown]
  - Muscle spasms [Unknown]
  - Anaemia [Unknown]
  - Menstruation irregular [Unknown]
  - Pelvic pain [Unknown]
  - Ovarian cyst ruptured [Recovered/Resolved]

NARRATIVE: CASE EVENT DATE: 201406
